FAERS Safety Report 17843975 (Version 1)
Quarter: 2020Q2

REPORT INFORMATION
  Report Type: Spontaneous
  Country: US (occurrence: US)
  Receive Date: 20200601
  Receipt Date: 20200601
  Transmission Date: 20200714
  Serious: Yes (Other)
  Sender: FDA-Public Use
  Company Number: US-STRIDES ARCOLAB LIMITED-2019SP009147

PATIENT
  Age: 87 Year
  Sex: Male

DRUGS (1)
  1. VANCOMYCIN [Suspect]
     Active Substance: VANCOMYCIN
     Indication: PNEUMONIA
     Dosage: 100 MILLIGRAM, EVERY 8 HOURS
     Route: 048

REACTIONS (5)
  - Fall [Unknown]
  - Off label use [Unknown]
  - Vestibular disorder [Unknown]
  - Ototoxicity [Unknown]
  - Balance disorder [Unknown]
